FAERS Safety Report 18610871 (Version 1)
Quarter: 2020Q4

REPORT INFORMATION
  Report Type: Spontaneous
  Country: US (occurrence: US)
  Receive Date: 20201214
  Receipt Date: 20201214
  Transmission Date: 20210114
  Serious: Yes (Other)
  Sender: FDA-Public Use
  Company Number: US-BAYER-2020-265558

PATIENT
  Age: 72 Year
  Sex: Female

DRUGS (2)
  1. CORICIDIN HBP NIGHTTIME MULTI-SYMPTOM COLD [Suspect]
     Active Substance: ACETAMINOPHEN\DEXTROMETHORPHAN HYDROBROMIDE\DOXYLAMINE SUCCINATE
     Indication: SLEEP DISORDER THERAPY
     Dosage: UNK UNK, PRN
     Route: 048
     Dates: start: 202011, end: 20201202
  2. HERBAL [Suspect]
     Active Substance: HERBALS
     Indication: SLEEP DISORDER THERAPY

REACTIONS (4)
  - Diarrhoea [Unknown]
  - Haematochezia [Unknown]
  - Product use in unapproved indication [Unknown]
  - Abdominal discomfort [Unknown]
